FAERS Safety Report 7924867-5 (Version None)
Quarter: 2011Q4

REPORT INFORMATION
  Report Type: 
  Country: None (occurrence: None)
  Receive Date: 20111118
  Receipt Date: 20110329
  Transmission Date: 20120403
  Serious: No
  Sender: FDA-Public Use
  Company Number: US-AMGEN-USASP2011016838

PATIENT
  Age: 49 Year
  Sex: Female

DRUGS (3)
  1. ENBREL [Suspect]
     Indication: RHEUMATOID ARTHRITIS
     Dosage: 50 MG, QWK
  2. FOLIC ACID [Concomitant]
     Dosage: 1 MG, UNK
  3. TREXALL [Concomitant]
     Dosage: 2.5 MG, UNK
     Dates: start: 20101210

REACTIONS (9)
  - COUGH [None]
  - INJECTION SITE OEDEMA [None]
  - INJECTION SITE ERYTHEMA [None]
  - MUSCULOSKELETAL STIFFNESS [None]
  - UPPER RESPIRATORY TRACT INFECTION [None]
  - INJECTION SITE PAIN [None]
  - NASAL CONGESTION [None]
  - EAR INFECTION [None]
  - WHEEZING [None]
